FAERS Safety Report 9674998 (Version 2)
Quarter: 2013Q4

REPORT INFORMATION
  Report Type: Spontaneous
  Country: US (occurrence: US)
  Receive Date: 20131107
  Receipt Date: 20131209
  Transmission Date: 20140711
  Serious: Yes (Other)
  Sender: FDA-Public Use
  Company Number: US-009507513-1310USA006459

PATIENT
  Age: 49 Year
  Sex: Male
  Weight: 90.7 kg

DRUGS (5)
  1. REBETOL [Suspect]
     Indication: HEPATITIS C
     Dosage: 400 MG, QD
     Route: 048
     Dates: start: 20090618, end: 2009
  2. REBETOL [Suspect]
     Dosage: 200 UNK, UNK
     Route: 048
     Dates: start: 200909, end: 200912
  3. PEGINTERFERON ALFA-2A [Suspect]
     Indication: HEPATITIS C
     Dosage: 135 MICROGRAM, QW
     Route: 058
  4. PRINIVIL [Concomitant]
     Indication: BLOOD PRESSURE ABNORMAL
     Dosage: 20 MG, QD
  5. FUROSEMIDE [Concomitant]
     Indication: BLOOD PRESSURE ABNORMAL
     Dosage: 40 MG, QD

REACTIONS (7)
  - Anaemia [Recovered/Resolved]
  - Fatigue [Unknown]
  - Irritability [Unknown]
  - Nausea [Unknown]
  - Weight decreased [Unknown]
  - Myalgia [Unknown]
  - Disturbance in attention [Unknown]
